FAERS Safety Report 9519268 (Version 1)
Quarter: 2013Q3

REPORT INFORMATION
  Report Type: Spontaneous
  Country: CO (occurrence: CO)
  Receive Date: 20130912
  Receipt Date: 20130912
  Transmission Date: 20140515
  Serious: Yes (Death, Hospitalization)
  Sender: FDA-Public Use
  Company Number: CO-UCBSA-097552

PATIENT
  Age: 82 Year
  Sex: Female

DRUGS (3)
  1. ROTIGOTINE [Suspect]
     Indication: PARKINSON^S DISEASE
     Dosage: DOSE: 4MG/24 HOURS
     Route: 062
     Dates: start: 20130416
  2. LEVODOPA [Concomitant]
     Dosage: DOSE: 1/2 TABLET EACH 6 HOURS
  3. MIRAPEX [Concomitant]

REACTIONS (1)
  - Pneumonia [Fatal]
